FAERS Safety Report 9196737 (Version 1)
Quarter: 2013Q1

REPORT INFORMATION
  Report Type: Spontaneous
  Country: US (occurrence: US)
  Receive Date: 20130328
  Receipt Date: 20130328
  Transmission Date: 20140127
  Serious: No
  Sender: FDA-Public Use
  Company Number: US-TEVA-395101USA

PATIENT
  Age: 2 Year
  Sex: Female

DRUGS (1)
  1. ACTIQ [Suspect]

REACTIONS (1)
  - Accidental exposure to product [Unknown]
